FAERS Safety Report 22324791 (Version 6)
Quarter: 2024Q2

REPORT INFORMATION
  Report Type: Spontaneous
  Country: CA (occurrence: CA)
  Receive Date: 20230516
  Receipt Date: 20240507
  Transmission Date: 20240716
  Serious: Yes (Hospitalization, Other)
  Sender: FDA-Public Use
  Company Number: CA-PFIZER INC-202201173354

PATIENT
  Age: 53 Year
  Sex: Female

DRUGS (6)
  1. RUXIENCE [Suspect]
     Active Substance: RITUXIMAB-PVVR
     Indication: Rheumatoid arthritis
     Dosage: 1000 MG, DAY 1 AND DAY 15
     Route: 042
     Dates: start: 20221020, end: 2022
  2. RUXIENCE [Suspect]
     Active Substance: RITUXIMAB-PVVR
     Dosage: 1000 MG, DAY 1 AND DAY 15
     Route: 042
     Dates: start: 20231027, end: 20231110
  3. METHOTREXATE [Concomitant]
     Active Substance: METHOTREXATE
     Dosage: 1 DF, DOSAGE NOT AVAILABLE
     Route: 065
  4. PREDNISONE [Concomitant]
     Active Substance: PREDNISONE
     Indication: Rheumatoid arthritis
     Dosage: 50 MG, 1X/DAY
     Route: 065
     Dates: start: 20220919
  5. PREDNISONE [Concomitant]
     Active Substance: PREDNISONE
     Dosage: 20 MG, DAILY
  6. SYNTHROID [Concomitant]
     Active Substance: LEVOTHYROXINE SODIUM
     Dosage: 1 DROP (0.125MG) , DAILY

REACTIONS (9)
  - Arthritis infective [Recovering/Resolving]
  - Breast disorder [Unknown]
  - Tooth disorder [Unknown]
  - Peripheral swelling [Unknown]
  - Rash [Unknown]
  - Blood immunoglobulin G increased [Not Recovered/Not Resolved]
  - CD19 lymphocytes decreased [Unknown]
  - Eye infection [Unknown]
  - Dry eye [Unknown]

NARRATIVE: CASE EVENT DATE: 20221001
